FAERS Safety Report 12632302 (Version 2)
Quarter: 2016Q3

REPORT INFORMATION
  Report Type: Spontaneous
  Country: US (occurrence: US)
  Receive Date: 20160808
  Receipt Date: 20160808
  Transmission Date: 20161109
  Serious: No
  Sender: FDA-Public Use
  Company Number: US-BEH-2016062342

PATIENT
  Sex: Female
  Weight: 76 kg

DRUGS (18)
  1. DIPHENHYDRAMINE. [Concomitant]
     Active Substance: DIPHENHYDRAMINE
  2. SINGULAIR [Concomitant]
     Active Substance: MONTELUKAST SODIUM
  3. THYROID POWDER [Concomitant]
  4. HIZENTRA [Suspect]
     Active Substance: HUMAN IMMUNOGLOBULIN G
     Indication: IMMUNODEFICIENCY COMMON VARIABLE
     Route: 058
  5. BLACK COHOSH [Concomitant]
     Active Substance: BLACK COHOSH
  6. SINGULAIR [Concomitant]
     Active Substance: MONTELUKAST SODIUM
  7. PROAIR HFA [Concomitant]
     Active Substance: ALBUTEROL SULFATE
  8. HIZENTRA [Suspect]
     Active Substance: HUMAN IMMUNOGLOBULIN G
     Indication: IMMUNODEFICIENCY COMMON VARIABLE
     Route: 058
  9. ACETAMINOPHEN. [Concomitant]
     Active Substance: ACETAMINOPHEN
  10. EPIPEN [Concomitant]
     Active Substance: EPINEPHRINE
  11. PREMARIN [Concomitant]
     Active Substance: ESTROGENS, CONJUGATED
  12. CEFTIN [Concomitant]
     Active Substance: CEFUROXIME AXETIL
  13. L-M-X [Concomitant]
  14. CYMBALTA [Concomitant]
     Active Substance: DULOXETINE HYDROCHLORIDE
  15. NASACORT [Concomitant]
     Active Substance: TRIAMCINOLONE ACETONIDE
  16. FEXOFENADINE [Concomitant]
     Active Substance: FEXOFENADINE\FEXOFENADINE HYDROCHLORIDE
  17. CUBICIN [Concomitant]
     Active Substance: DAPTOMYCIN
  18. ADVAIR HFA [Concomitant]
     Active Substance: FLUTICASONE PROPIONATE\SALMETEROL XINAFOATE

REACTIONS (1)
  - Multiple allergies [Unknown]
